FAERS Safety Report 13941501 (Version 3)
Quarter: 2018Q3

REPORT INFORMATION
  Report Type: Report from Study
  Country: US (occurrence: US)
  Receive Date: 20170906
  Receipt Date: 20180713
  Transmission Date: 20181010
  Serious: Yes (Other)
  Sender: FDA-Public Use
  Company Number: US-OTSUKA-2017_018719

PATIENT
  Sex: Female

DRUGS (1)
  1. DEXTROMETHORPHAN/QUINIDINE [Suspect]
     Active Substance: DEXTROMETHORPHAN HYDROBROMIDE\QUINIDINE SULFATE
     Indication: AFFECT LABILITY
     Dosage: 1 DF(20/10MG), BID
     Route: 065
     Dates: start: 2015

REACTIONS (4)
  - Disease recurrence [Not Recovered/Not Resolved]
  - Mid-life crisis [Not Recovered/Not Resolved]
  - Muscle tightness [Recovered/Resolved]
  - Mental disorder [Not Recovered/Not Resolved]
